FAERS Safety Report 25163274 (Version 1)
Quarter: 2025Q2

REPORT INFORMATION
  Report Type: Spontaneous
  Country: US (occurrence: US)
  Receive Date: 20250404
  Receipt Date: 20250404
  Transmission Date: 20250716
  Serious: Yes (Hospitalization)
  Sender: AMGEN
  Company Number: US-AMGEN-USASP2025065224

PATIENT
  Age: 77 Year
  Sex: Female

DRUGS (18)
  1. OTEZLA [Suspect]
     Active Substance: APREMILAST
     Indication: Psoriatic arthropathy
     Dosage: 30 MILLIGRAM, BID
     Route: 048
     Dates: start: 20230127
  2. PREDNISONE [Suspect]
     Active Substance: PREDNISONE
     Indication: Product used for unknown indication
     Route: 065
  3. ELIQUIS [Concomitant]
     Active Substance: APIXABAN
  4. HYDROCHLOROTHIAZIDE [Concomitant]
     Active Substance: HYDROCHLOROTHIAZIDE
  5. TELMISARTAN [Concomitant]
     Active Substance: TELMISARTAN
  6. FUROSEMIDE [Concomitant]
     Active Substance: FUROSEMIDE
  7. ALPRAZOLAM [Concomitant]
     Active Substance: ALPRAZOLAM
  8. BENZONATATE [Concomitant]
     Active Substance: BENZONATATE
  9. BENZONATATE [Concomitant]
     Active Substance: BENZONATATE
  10. POTASSIUM CHLORIDE [Concomitant]
     Active Substance: POTASSIUM CHLORIDE
  11. IBUPROFEN [Concomitant]
     Active Substance: IBUPROFEN
  12. DILTIAZEM [Concomitant]
     Active Substance: DILTIAZEM
  13. ATORVASTATIN [Concomitant]
     Active Substance: ATORVASTATIN
  14. SPIRIVA RESPIMAT [Concomitant]
     Active Substance: TIOTROPIUM BROMIDE
  15. BIMATOPROST [Concomitant]
     Active Substance: BIMATOPROST
  16. FERROUS SULFATE [Concomitant]
     Active Substance: FERROUS SULFATE
  17. ASPIRIN [Concomitant]
     Active Substance: ASPIRIN
  18. REMICADE [Concomitant]
     Active Substance: INFLIXIMAB

REACTIONS (1)
  - Dyspnoea [Not Recovered/Not Resolved]
